FAERS Safety Report 20100402 (Version 1)
Quarter: 2021Q4

REPORT INFORMATION
  Report Type: Spontaneous
  Country: EG (occurrence: EG)
  Receive Date: 20211123
  Receipt Date: 20211123
  Transmission Date: 20220303
  Serious: Yes (Life-Threatening, Other)
  Sender: FDA-Public Use
  Company Number: EG-NOVARTISPH-NVSC2021EG266667

PATIENT
  Age: 41 Year
  Sex: Female

DRUGS (6)
  1. ENTRESTO [Suspect]
     Active Substance: SACUBITRIL\VALSARTAN
     Indication: Cardiac failure
     Dosage: 1 DF, BID
     Route: 048
     Dates: start: 201903, end: 20211015
  2. ENTRESTO [Suspect]
     Active Substance: SACUBITRIL\VALSARTAN
     Indication: Ejection fraction
  3. METFORMIN HYDROCHLORIDE\VILDAGLIPTIN [Concomitant]
     Active Substance: METFORMIN HYDROCHLORIDE\VILDAGLIPTIN
     Indication: Diabetes mellitus
     Dosage: 1 DF, QD
     Route: 065
     Dates: start: 2019
  4. BUMETANIDE [Concomitant]
     Active Substance: BUMETANIDE
     Indication: Cardiac disorder
     Dosage: 1 DF, QD
     Route: 065
     Dates: start: 2019
  5. BUMETANIDE [Concomitant]
     Active Substance: BUMETANIDE
     Indication: Hypertension
  6. CARFALONE [Concomitant]
     Indication: Cardiac disorder
     Dosage: 1 DF, QD
     Route: 065
     Dates: start: 2019

REACTIONS (13)
  - Dyspnoea [Not Recovered/Not Resolved]
  - Movement disorder [Not Recovered/Not Resolved]
  - Speech disorder [Not Recovered/Not Resolved]
  - Cough [Not Recovered/Not Resolved]
  - Product dose omission issue [Not Recovered/Not Resolved]
  - Hypertension [Not Recovered/Not Resolved]
  - Eye disorder [Not Recovered/Not Resolved]
  - Cardiac disorder [Recovered/Resolved]
  - Heart rate abnormal [Recovered/Resolved]
  - Blood glucose fluctuation [Recovered/Resolved]
  - Blood pressure fluctuation [Recovered/Resolved]
  - Emotional disorder [Recovered/Resolved]
  - Alopecia [Recovered/Resolved]

NARRATIVE: CASE EVENT DATE: 20190302
